FAERS Safety Report 4939891-4 (Version None)
Quarter: 2006Q1

REPORT INFORMATION
  Report Type: 
  Country: None (occurrence: None)
  Receive Date: 20060310
  Receipt Date: 20060301
  Transmission Date: 20060701
  Serious: Yes (Death)
  Sender: FDA-Public Use
  Company Number: US-GLAXOSMITHKLINE-A0595709A

PATIENT
  Sex: Female

DRUGS (3)
  1. SEREVENT [Suspect]
     Indication: ASTHMA
     Route: 055
  2. ALBUTEROL [Concomitant]
  3. ADVAIR DISKUS 100/50 [Concomitant]

REACTIONS (1)
  - DEATH [None]
